FAERS Safety Report 5319443-7 (Version None)
Quarter: 2007Q2

REPORT INFORMATION
  Report Type: 
  Country: None (occurrence: None)
  Receive Date: 20070508
  Receipt Date: 20070426
  Transmission Date: 20071010
  Serious: Yes (Hospitalization)
  Sender: FDA-Public Use
  Company Number: AU-ELI_LILLY_AND_COMPANY-AU200705000002

PATIENT
  Sex: Female

DRUGS (2)
  1. ZYPREXA [Suspect]
     Indication: PSYCHOTIC DISORDER
  2. BENZODIAZEPINE DERIVATIVES [Interacting]
     Indication: PSYCHOTIC DISORDER

REACTIONS (2)
  - DRUG INTERACTION [None]
  - RESPIRATORY DEPRESSION [None]
